FAERS Safety Report 14938386 (Version 1)
Quarter: 2018Q2

REPORT INFORMATION
  Report Type: Spontaneous
  Country: JP (occurrence: JP)
  Receive Date: 20180525
  Receipt Date: 20180525
  Transmission Date: 20180711
  Serious: Yes (Other)
  Sender: FDA-Public Use
  Company Number: JP-ASTRAZENECA-2018SE68243

PATIENT
  Age: 72 Year
  Sex: Male

DRUGS (7)
  1. QUETIAPINE. [Suspect]
     Active Substance: QUETIAPINE
     Indication: PROGRESSIVE SUPRANUCLEAR PALSY
     Route: 065
  2. QUETIAPINE. [Suspect]
     Active Substance: QUETIAPINE
     Indication: HALLUCINATION, VISUAL
     Route: 065
  3. QUETIAPINE. [Suspect]
     Active Substance: QUETIAPINE
     Indication: IMPULSE-CONTROL DISORDER
     Route: 065
  4. QUETIAPINE. [Suspect]
     Active Substance: QUETIAPINE
     Indication: HALLUCINATION, VISUAL
     Route: 065
  5. LEVODOPA [Concomitant]
     Active Substance: LEVODOPA
     Route: 048
  6. QUETIAPINE. [Suspect]
     Active Substance: QUETIAPINE
     Indication: IMPULSE-CONTROL DISORDER
     Route: 065
  7. QUETIAPINE. [Suspect]
     Active Substance: QUETIAPINE
     Indication: PROGRESSIVE SUPRANUCLEAR PALSY
     Route: 065

REACTIONS (3)
  - Disuse syndrome [Unknown]
  - Parkinsonism [Recovering/Resolving]
  - Off label use [Unknown]
